FAERS Safety Report 15395533 (Version 1)
Quarter: 2018Q3

REPORT INFORMATION
  Report Type: Spontaneous
  Country: US (occurrence: US)
  Receive Date: 20180912
  Receipt Date: 20180912
  Transmission Date: 20181010
  Serious: Yes (Hospitalization, Other)
  Sender: FDA-Public Use
  Company Number: None

PATIENT
  Age: 66 Year
  Sex: Male
  Weight: 83.5 kg

DRUGS (1)
  1. IMBRUVICA [Suspect]
     Active Substance: IBRUTINIB
     Indication: CHRONIC LYMPHOCYTIC LEUKAEMIA
     Route: 048
     Dates: start: 20180707

REACTIONS (6)
  - Pneumocystis jirovecii infection [None]
  - Pyrexia [None]
  - Dyspnoea [None]
  - Rash macular [None]
  - Pneumocystis jirovecii pneumonia [None]
  - Lung infiltration [None]

NARRATIVE: CASE EVENT DATE: 20180723
